FAERS Safety Report 23134524 (Version 1)
Quarter: 2023Q4

REPORT INFORMATION
  Report Type: Spontaneous
  Country: PK (occurrence: None)
  Receive Date: 20231029
  Receipt Date: 20231029
  Transmission Date: 20240109
  Serious: Yes (Hospitalization)
  Sender: FDA-Public Use
  Company Number: None

PATIENT
  Age: 49 Year
  Sex: Female
  Weight: 62 kg

DRUGS (5)
  1. CHOLECALCIFEROL [Suspect]
     Active Substance: CHOLECALCIFEROL
     Dates: start: 20231026
  2. Gablin (pregabalin) [Concomitant]
  3. Getzid MR(Gliclazide) [Concomitant]
  4. Admit-50/500 [Concomitant]
  5. Vitamin D(vevedox) [Concomitant]

REACTIONS (6)
  - Oropharyngeal pain [None]
  - Musculoskeletal chest pain [None]
  - Chest pain [None]
  - Pyrexia [None]
  - Feeling hot [None]
  - Peripheral coldness [None]

NARRATIVE: CASE EVENT DATE: 20231026
